FAERS Safety Report 19919873 (Version 2)
Quarter: 2021Q4

REPORT INFORMATION
  Report Type: Spontaneous
  Country: US (occurrence: US)
  Receive Date: 20211005
  Receipt Date: 20211122
  Transmission Date: 20220303
  Serious: No
  Sender: FDA-Public Use
  Company Number: US-009507513-2109USA004527

PATIENT
  Age: 86 Year
  Sex: Female

DRUGS (4)
  1. PRIMAXIN IV [Suspect]
     Active Substance: CILASTATIN SODIUM\IMIPENEM
     Indication: Nocardiosis
     Dosage: 500 MG IV EVERY 8 HOURS
     Route: 042
  2. PRIMAXIN IV [Suspect]
     Active Substance: CILASTATIN SODIUM\IMIPENEM
     Indication: Eye infection bacterial
  3. AMIKACIN [Concomitant]
     Active Substance: AMIKACIN
     Indication: Nocardiosis
     Dosage: 10 MG/KG EVERY 24 HOURS
  4. FLUCONAZOLE [Concomitant]
     Active Substance: FLUCONAZOLE
     Indication: Nocardiosis
     Dosage: 400 MG ONCE DAILY ORALLY
     Route: 048

REACTIONS (1)
  - Product use in unapproved indication [Unknown]
